FAERS Safety Report 21035600 (Version 13)
Quarter: 2023Q2

REPORT INFORMATION
  Report Type: Report from Study
  Country: US (occurrence: US)
  Receive Date: 20220701
  Receipt Date: 20230606
  Transmission Date: 20230721
  Serious: No
  Sender: FDA-Public Use
  Company Number: US-NOVARTISTESTPH-NVSC2022US150776

PATIENT
  Age: 37 Year
  Sex: Female

DRUGS (3)
  1. KESIMPTA [Suspect]
     Active Substance: OFATUMUMAB
     Indication: Multiple sclerosis
     Dosage: 20 MG, QMO
     Route: 058
     Dates: start: 20220515
  2. KESIMPTA [Suspect]
     Active Substance: OFATUMUMAB
     Dosage: 20 MG, QW
     Route: 058
     Dates: start: 20220615
  3. KESIMPTA [Suspect]
     Active Substance: OFATUMUMAB
     Dosage: 20 MG, QMO (FORMULATION: SOLUTION FOR INJECTION)
     Route: 058

REACTIONS (9)
  - Oropharyngeal pain [Unknown]
  - Dyskinesia [Unknown]
  - B-lymphocyte count decreased [Unknown]
  - Mood swings [Unknown]
  - Feeling abnormal [Unknown]
  - Peripheral swelling [Unknown]
  - Fall [Unknown]
  - Headache [Recovered/Resolved]
  - Injection site pain [Recovered/Resolved]

NARRATIVE: CASE EVENT DATE: 20220615
